FAERS Safety Report 11365640 (Version 5)
Quarter: 2015Q4

REPORT INFORMATION
  Report Type: Spontaneous
  Country: US (occurrence: US)
  Receive Date: 20150811
  Receipt Date: 20151117
  Transmission Date: 20160304
  Serious: Yes (Hospitalization, Other)
  Sender: FDA-Public Use
  Company Number: US-UNITED THERAPEUTICS-UNT-2015-008281

PATIENT
  Age: 66 Year
  Sex: Female
  Weight: 87.75 kg

DRUGS (6)
  1. COUMADIN [Concomitant]
     Active Substance: WARFARIN SODIUM
     Indication: PRODUCT USED FOR UNKNOWN INDICATION
  2. REMODULIN [Suspect]
     Active Substance: TREPROSTINIL
     Indication: PULMONARY ARTERIAL HYPERTENSION
     Dosage: 0.00235 ?G/KG, CONTINUING
     Route: 041
     Dates: start: 20150702
  3. REMODULIN [Suspect]
     Active Substance: TREPROSTINIL
     Dosage: 0.004 ?G/KG, CONTINUING
     Route: 041
  4. ADCIRCA [Concomitant]
     Active Substance: TADALAFIL
     Indication: PRODUCT USED FOR UNKNOWN INDICATION
  5. REMODULIN [Suspect]
     Active Substance: TREPROSTINIL
     Dosage: 0.003 ?G/KG, CONTINUING
     Route: 041
  6. REMODULIN [Suspect]
     Active Substance: TREPROSTINIL
     Dosage: 0.0048 ?G/KG, CONTINUING
     Route: 041

REACTIONS (15)
  - Catheter site haemorrhage [Unknown]
  - Injection site pruritus [Unknown]
  - Cardiac failure congestive [Unknown]
  - Nausea [Recovered/Resolved]
  - International normalised ratio decreased [Unknown]
  - Sinus headache [Recovered/Resolved]
  - Blood potassium decreased [Unknown]
  - Myocardial infarction [Unknown]
  - Drug dose omission [Unknown]
  - Haemoglobin decreased [Unknown]
  - Fluid retention [Unknown]
  - Device issue [Unknown]
  - Back pain [Recovered/Resolved]
  - Pain in extremity [Unknown]
  - Diarrhoea [Unknown]

NARRATIVE: CASE EVENT DATE: 201507
